FAERS Safety Report 13381897 (Version 1)
Quarter: 2017Q1

REPORT INFORMATION
  Report Type: Spontaneous
  Country: TR (occurrence: TR)
  Receive Date: 20170329
  Receipt Date: 20170329
  Transmission Date: 20170429
  Serious: Yes (Other)
  Sender: FDA-Public Use
  Company Number: PHHY2016TR113987

PATIENT
  Age: 31 Year
  Sex: Female

DRUGS (1)
  1. ZOFRAN [Suspect]
     Active Substance: ONDANSETRON HYDROCHLORIDE
     Indication: MALAISE
     Dosage: 8 MG, ONCE OR TWICE
     Route: 048

REACTIONS (4)
  - Product use issue [Unknown]
  - Maternal exposure during pregnancy [Unknown]
  - Delivery [Unknown]
  - Premature delivery [Unknown]

NARRATIVE: CASE EVENT DATE: 20161226
